FAERS Safety Report 23371759 (Version 1)
Quarter: 2024Q1

REPORT INFORMATION
  Report Type: Spontaneous
  Country: FI (occurrence: FI)
  Receive Date: 20240105
  Receipt Date: 20240105
  Transmission Date: 20240409
  Serious: Yes (Life-Threatening, Hospitalization)
  Sender: FDA-Public Use
  Company Number: FI-LUNDBECK-DKLU3021638

PATIENT
  Age: 29 Year
  Sex: Male

DRUGS (3)
  1. CHLORDIAZEPOXIDE [Suspect]
     Active Substance: CHLORDIAZEPOXIDE
     Indication: Product used for unknown indication
     Dosage: OVERDOSE: UNKNOWN DOSE
     Route: 048
  2. NORTRIPTYLINE [Suspect]
     Active Substance: NORTRIPTYLINE
     Indication: Product used for unknown indication
     Dosage: OVERDOSE: UNKNOWN DOSE
     Route: 048
  3. AMITRIPTYLINE [Suspect]
     Active Substance: AMITRIPTYLINE
     Indication: Product used for unknown indication
     Dosage: OVERDOSE: UNKNOWN DOSE
     Route: 048

REACTIONS (2)
  - Coma [Recovered/Resolved]
  - Overdose [Unknown]
